FAERS Safety Report 24365200 (Version 1)
Quarter: 2024Q3

REPORT INFORMATION
  Report Type: Spontaneous
  Country: CZ (occurrence: CZ)
  Receive Date: 20240926
  Receipt Date: 20240926
  Transmission Date: 20241017
  Serious: Yes (Other)
  Sender: CELLTRION
  Company Number: None

PATIENT

DRUGS (2)
  1. INFLIXIMAB [Suspect]
     Active Substance: INFLIXIMAB
     Indication: Crohn^s disease
     Dosage: 400 MG, EVERY 2 MONTHS (INFUSION OF 400 MG ONCE EVERY 2 MONTHS)
     Dates: start: 20190227, end: 20240117
  2. IMURAN [Concomitant]
     Active Substance: AZATHIOPRINE
     Indication: Crohn^s disease
     Dosage: 100 MG, EVERY 2 MONTHS (CHRONIC CONCOMITANT THERAPY)
     Route: 048
     Dates: start: 20131209

REACTIONS (2)
  - Immune-mediated scleritis [Recovering/Resolving]
  - Overdose [Unknown]

NARRATIVE: CASE EVENT DATE: 20230901
